FAERS Safety Report 7175818-5 (Version None)
Quarter: 2010Q4

REPORT INFORMATION
  Report Type: 
  Country: None (occurrence: None)
  Receive Date: 20101220
  Receipt Date: 20100408
  Transmission Date: 20110411
  Serious: Yes (Hospitalization)
  Sender: FDA-Public Use
  Company Number: US-AMGEN-QUU402517

PATIENT

DRUGS (8)
  1. ENBREL [Suspect]
     Indication: PSORIASIS
     Dosage: 50 MG, QWK
     Dates: start: 20090901
  2. OMEPRAZOLE [Concomitant]
     Dosage: UNK UNK, UNK
  3. PROMETHAZINE [Concomitant]
     Dosage: UNK UNK, UNK
  4. LISINOPRIL [Concomitant]
     Dosage: UNK UNK, UNK
  5. TRIAMCINOLONE [Concomitant]
     Dosage: UNK UNK, UNK
  6. METRONIDAZOLE [Concomitant]
     Dosage: UNK UNK, UNK
  7. PREGABALIN [Concomitant]
  8. ACETAMINOPHEN AND HYDROCODONE BITARTRATE [Concomitant]

REACTIONS (1)
  - PANCREATITIS [None]
